FAERS Safety Report 17859218 (Version 1)
Quarter: 2020Q2

REPORT INFORMATION
  Report Type: Spontaneous
  Country: AT (occurrence: AT)
  Receive Date: 20200604
  Receipt Date: 20200604
  Transmission Date: 20200714
  Serious: Yes (Life-Threatening, Hospitalization, Other)
  Sender: FDA-Public Use
  Company Number: AT-TEVA-2020-AT-1243800

PATIENT
  Age: 66 Year
  Sex: Female
  Weight: 65 kg

DRUGS (5)
  1. LAMOTRIGIN 50 MG [Suspect]
     Active Substance: LAMOTRIGINE
     Dosage: LAMOTRIGIN 25 MG
  2. PROLIA [Concomitant]
     Active Substance: DENOSUMAB
     Indication: OSTEOPOROSIS
     Dates: start: 2015
  3. CAL D VITA [Concomitant]
     Indication: OSTEOPOROSIS
     Dates: start: 2015
  4. LAMOTRIGIN 50 MG [Suspect]
     Active Substance: LAMOTRIGINE
  5. QUETIALAN 100 MG - FILMTABLETTEN [Concomitant]
     Indication: DEPRESSION
     Dosage: 100 MILLIGRAM DAILY; 0-0-1
     Route: 048

REACTIONS (3)
  - Oral mucosal blistering [Not Recovered/Not Resolved]
  - Corneal exfoliation [Not Recovered/Not Resolved]
  - Erythema multiforme [Not Recovered/Not Resolved]

NARRATIVE: CASE EVENT DATE: 20200315
